FAERS Safety Report 8614976-X (Version None)
Quarter: 2012Q3

REPORT INFORMATION
  Report Type: 
  Country: None (occurrence: None)
  Receive Date: 20120823
  Receipt Date: 20120817
  Transmission Date: 20120928
  Serious: Yes (Hospitalization)
  Sender: FDA-Public Use
  Company Number: NZ-SANOFI-AVENTIS-2012SA045170

PATIENT
  Age: 69 Year
  Sex: Female

DRUGS (16)
  1. NOVORAPID [Concomitant]
  2. GABAPENTIN [Concomitant]
  3. FUROSEMIDE [Concomitant]
  4. ACETAMINOPHEN [Concomitant]
  5. METFORMIN [Concomitant]
  6. WARFARIN SODIUM [Concomitant]
  7. CILAZAPRIL [Concomitant]
  8. LANTUS [Suspect]
     Route: 058
     Dates: start: 20111130
  9. LEVOTHYROXINE SODIUM [Concomitant]
  10. SIMVASTATIN [Concomitant]
  11. SPIRONOLACTONE [Concomitant]
  12. DIGOXIN [Concomitant]
  13. METOPROLOL TARTRATE [Concomitant]
  14. LANTUS [Suspect]
     Dosage: DOSE:60 UNIT(S)
     Route: 058
  15. ASPIRIN [Concomitant]
  16. LANTUS [Suspect]
     Dosage: DOSE:12 UNIT(S)
     Route: 058
     Dates: start: 20120624

REACTIONS (12)
  - VOMITING [None]
  - NAUSEA [None]
  - CHEST DISCOMFORT [None]
  - COUGH [None]
  - HEART RATE INCREASED [None]
  - DIARRHOEA [None]
  - ABDOMINAL PAIN UPPER [None]
  - ABDOMINAL TENDERNESS [None]
  - GASTROINTESTINAL DISORDER [None]
  - ATRIAL FIBRILLATION [None]
  - PALPITATIONS [None]
  - HAEMOPTYSIS [None]
